FAERS Safety Report 4891115-2 (Version None)
Quarter: 2006Q1

REPORT INFORMATION
  Report Type: 
  Country: None (occurrence: None)
  Receive Date: 20060125
  Receipt Date: 20060117
  Transmission Date: 20060701
  Serious: Yes (Hospitalization)
  Sender: FDA-Public Use
  Company Number: JP-MERCK-0601USA02130

PATIENT

DRUGS (2)
  1. INDOCIN [Suspect]
     Route: 054
     Dates: start: 20050101
  2. AMARYL [Concomitant]
     Route: 048

REACTIONS (1)
  - DIABETES MELLITUS INADEQUATE CONTROL [None]
